FAERS Safety Report 23743548 (Version 2)
Quarter: 2024Q2

REPORT INFORMATION
  Report Type: Spontaneous
  Country: PY (occurrence: PY)
  Receive Date: 20240415
  Receipt Date: 20240416
  Transmission Date: 20240715
  Serious: Yes (Hospitalization)
  Sender: FDA-Public Use
  Company Number: PY-SA-SAC20230322001042

PATIENT

DRUGS (1)
  1. LARONIDASE [Suspect]
     Active Substance: LARONIDASE
     Indication: Mucopolysaccharidosis I
     Dosage: 26.3 MG, QW
     Route: 042
     Dates: end: 202404

REACTIONS (10)
  - Hypertension [Unknown]
  - Tachycardia [Unknown]
  - Influenza [Unknown]
  - Myalgia [Unknown]
  - Cough [Unknown]
  - Influenza like illness [Unknown]
  - Pyrexia [Unknown]
  - Pain [Unknown]
  - Headache [Unknown]
  - Pyrexia [Unknown]

NARRATIVE: CASE EVENT DATE: 20230521
